FAERS Safety Report 5040767-5 (Version None)
Quarter: 2006Q2

REPORT INFORMATION
  Report Type: 
  Country: None (occurrence: None)
  Receive Date: 20060630
  Receipt Date: 20060630
  Transmission Date: 20061013
  Serious: No
  Sender: FDA-Public Use
  Company Number: None

PATIENT
  Sex: Male
  Weight: 116.1208 kg

DRUGS (9)
  1. VARDENAFIL    20MG [Suspect]
     Indication: ERECTILE DYSFUNCTION
     Dosage: 10MG     PRN    PO
     Route: 048
     Dates: start: 20060216, end: 20060406
  2. ALBUTEROL /IPRATROP [Concomitant]
  3. ARIPIPRAZOLE [Concomitant]
  4. CHLORPHENIRAMINE MALEATE [Concomitant]
  5. CIMETIDINE [Concomitant]
  6. CODEINE PHOSPHATE AND ACETAMINOPHEN [Concomitant]
  7. CYCLOBENZAPRINE HCL [Concomitant]
  8. FLUNISOLIDE [Concomitant]
  9. IBUPROFEN [Concomitant]

REACTIONS (2)
  - ABNORMAL BEHAVIOUR [None]
  - FEELING ABNORMAL [None]
